FAERS Safety Report 5921315-1 (Version None)
Quarter: 2008Q4

REPORT INFORMATION
  Report Type: 
  Country: None (occurrence: None)
  Receive Date: 20081016
  Receipt Date: 20081013
  Transmission Date: 20090506
  Serious: Yes (Other)
  Sender: FDA-Public Use
  Company Number: US-MERCK-0810USA02587

PATIENT
  Age: 65 Year
  Sex: Female

DRUGS (14)
  1. PEPCID [Suspect]
     Indication: PROPHYLAXIS AGAINST GASTROINTESTINAL ULCER
     Route: 048
  2. METHYLPREDNISOLONE [Concomitant]
     Route: 048
  3. CLOTRIMAZOLE [Concomitant]
     Route: 065
  4. SULFAMETHOXAZOLE AND TRIMETHOPRIM [Concomitant]
     Route: 065
  5. DACLIZUMAB [Suspect]
     Indication: LIVER TRANSPLANT
     Route: 042
  6. TACROLIMUS [Suspect]
     Route: 065
  7. MIDAZOLAM [Concomitant]
     Route: 065
  8. FENTANYL [Concomitant]
     Route: 065
  9. CEFOTAXIME SODIUM [Concomitant]
     Route: 065
  10. FLUCONAZOLE [Suspect]
     Route: 065
  11. INSULIN [Concomitant]
     Route: 065
  12. LAMIVUDINE [Concomitant]
     Route: 065
  13. ASPIRIN [Concomitant]
     Route: 065
  14. LEVOTHYROXINE SODIUM [Concomitant]
     Route: 065

REACTIONS (1)
  - SINUS BRADYCARDIA [None]
